FAERS Safety Report 9229573 (Version 3)
Quarter: 2013Q2

REPORT INFORMATION
  Report Type: Spontaneous
  Country: US (occurrence: US)
  Receive Date: 20130414
  Receipt Date: 20130603
  Transmission Date: 20140414
  Serious: Yes (Hospitalization)
  Sender: FDA-Public Use
  Company Number: US-B.I. PHARMACEUTICALS,INC./RIDGEFIELD-2013-BI-09709BP

PATIENT
  Age: 86 Year
  Sex: Male
  Weight: 108.86 kg

DRUGS (14)
  1. PRADAXA [Suspect]
     Indication: CEREBROVASCULAR ACCIDENT PROPHYLAXIS
     Dosage: 150 MG
     Dates: start: 201103, end: 20111230
  2. PRADAXA [Suspect]
     Indication: ATRIAL FIBRILLATION
  3. GLIPIZID [Concomitant]
     Dates: start: 1988
  4. LASIX [Concomitant]
     Dates: start: 1988
  5. ADVICOR [Concomitant]
     Dates: start: 1988
  6. CARVEDILOL [Concomitant]
     Dates: start: 1988
  7. SPIRONOLACTONE [Concomitant]
     Dates: start: 1988
  8. PANTOPRAZOLE [Concomitant]
     Dates: start: 1988
  9. DIGOXIN [Concomitant]
     Dates: start: 1988
  10. RAMIPRIL [Concomitant]
  11. PREVACID [Concomitant]
  12. LOPRESSOR [Concomitant]
  13. DILTIAZEM [Concomitant]
  14. ADVAIR [Concomitant]

REACTIONS (2)
  - Gastrointestinal haemorrhage [Recovered/Resolved]
  - Gastrointestinal haemorrhage [Unknown]
